FAERS Safety Report 9517811 (Version 7)
Quarter: 2014Q2

REPORT INFORMATION
  Report Type: Spontaneous
  Country: US (occurrence: US)
  Receive Date: 20130912
  Receipt Date: 20140606
  Transmission Date: 20141212
  Serious: Yes (Life-Threatening, Other)
  Sender: FDA-Public Use
  Company Number: US-JNJFOC-20130905618

PATIENT
  Age: 30 Year
  Sex: Female

DRUGS (15)
  1. TYLENOL ANALGESIC UNKNOWN [Suspect]
     Indication: VAGINAL HAEMORRHAGE
     Dosage: CONTINUED TAKING UNTIL THE 18TH OR SO
     Route: 065
     Dates: start: 20110312
  2. TYLENOL ANALGESIC UNKNOWN [Suspect]
     Indication: VAGINAL HAEMORRHAGE
     Dosage: 2-3 EVERY 4 HOURS
     Route: 065
  3. TYLENOL ANALGESIC UNKNOWN [Suspect]
     Indication: PYREXIA
     Dosage: 2-3 EVERY 4 HOURS
     Route: 065
  4. TYLENOL ANALGESIC UNKNOWN [Suspect]
     Indication: PYREXIA
     Dosage: CONTINUED TAKING UNTIL THE 18TH OR SO
     Route: 065
     Dates: start: 20110312
  5. TYLENOL ANALGESIC UNKNOWN [Suspect]
     Indication: ABDOMINAL PAIN
     Dosage: 2-3 EVERY 4 HOURS
     Route: 065
  6. TYLENOL ANALGESIC UNKNOWN [Suspect]
     Indication: ABDOMINAL PAIN
     Dosage: CONTINUED TAKING UNTIL THE 18TH OR SO
     Route: 065
     Dates: start: 20110312
  7. CIPRO [Concomitant]
     Indication: ENDOMETRITIS
     Route: 048
  8. FLAGYL [Concomitant]
     Indication: CHOLESTASIS
     Route: 048
  9. FLAGYL [Concomitant]
     Indication: ENDOMETRITIS
     Route: 048
  10. ISORDIL [Concomitant]
     Indication: CARDIAC FAILURE CONGESTIVE
     Route: 065
  11. APRESOLINE [Concomitant]
     Indication: CHOLESTASIS
     Route: 048
  12. APRESOLINE [Concomitant]
     Indication: CARDIAC FAILURE CONGESTIVE
     Route: 048
  13. COREG [Concomitant]
     Indication: CARDIAC FAILURE CONGESTIVE
     Route: 048
  14. ANTIBIOTICS [Concomitant]
     Indication: PRODUCT USED FOR UNKNOWN INDICATION
     Route: 065
  15. ZOSYN [Concomitant]
     Indication: CHOLESTASIS
     Route: 065

REACTIONS (9)
  - Renal failure chronic [Recovering/Resolving]
  - Acute hepatic failure [Recovered/Resolved]
  - Sepsis [Recovering/Resolving]
  - Renal failure [Recovered/Resolved]
  - Endometritis [Unknown]
  - Cardiac failure [Unknown]
  - Normochromic normocytic anaemia [Unknown]
  - Alcoholism [Unknown]
  - Alcohol abuse [Unknown]
